FAERS Safety Report 8559662-X (Version None)
Quarter: 2012Q3

REPORT INFORMATION
  Report Type: 
  Country: None (occurrence: None)
  Receive Date: 20120727
  Receipt Date: 20120727
  Transmission Date: 20120928
  Serious: Yes (Hospitalization)
  Sender: FDA-Public Use
  Company Number: None

PATIENT
  Age: 75 Year
  Sex: Male
  Weight: 70.6 kg

DRUGS (14)
  1. ASPIRIN [Suspect]
     Indication: ATRIAL FIBRILLATION
     Dosage: 81MG DAILY PO
     Route: 048
  2. VIT D3 [Concomitant]
  3. ZANTAC [Concomitant]
  4. NORVASC [Concomitant]
  5. PRADAXA [Suspect]
     Indication: ATRIAL FIBRILLATION
     Dosage: 150MG BID PO
     Route: 048
  6. SOTALOL HYDROCHLORIDE [Concomitant]
  7. NITROGLYCERIN [Concomitant]
  8. LUTEIN [Concomitant]
  9. HYDRALAZINE HCL [Concomitant]
  10. LIPITOR [Concomitant]
  11. FOLIC ACID [Concomitant]
  12. ATACAND HCL [Concomitant]
  13. IMDUR [Concomitant]
  14. NEXIUM [Concomitant]

REACTIONS (3)
  - GASTROINTESTINAL MUCOSAL DISORDER [None]
  - ANAEMIA [None]
  - LARGE INTESTINAL HAEMORRHAGE [None]
